FAERS Safety Report 18465015 (Version 1)
Quarter: 2020Q4

REPORT INFORMATION
  Report Type: Other
  Country: CA (occurrence: CA)
  Receive Date: 20201105
  Receipt Date: 20201105
  Transmission Date: 20210114
  Serious: Yes (Other)
  Sender: FDA-Public Use
  Company Number: CA-CELLTRION INC.-2020CA030097

PATIENT

DRUGS (20)
  1. PULMICORT TURBUHALER [Concomitant]
     Active Substance: BUDESONIDE
  2. RITUXIMAB (UNKNOWN) [Suspect]
     Active Substance: RITUXIMAB
     Indication: LARYNGEAL STENOSIS
     Dosage: UNK
     Route: 042
  3. RITUXIMAB (UNKNOWN) [Suspect]
     Active Substance: RITUXIMAB
     Indication: GRANULOMATOSIS WITH POLYANGIITIS
     Dosage: 770 MILLIGRAM, 1 EVERY 1 WEEKS
     Route: 042
  4. BENADRYL [Concomitant]
     Active Substance: DIPHENHYDRAMINE HYDROCHLORIDE
     Indication: PREMEDICATION
     Dosage: 50 MG
     Route: 048
  5. ACETAMINOPHEN. [Concomitant]
     Active Substance: ACETAMINOPHEN
     Indication: PREMEDICATION
     Dosage: 650.0 MILLIGRAM
     Route: 048
  6. CYTOXAN [Concomitant]
     Active Substance: CYCLOPHOSPHAMIDE
  7. EPIPEN [Concomitant]
     Active Substance: EPINEPHRINE
  8. PREDNISONE. [Concomitant]
     Active Substance: PREDNISONE
  9. ZOPLICONE [Concomitant]
     Active Substance: ZOPICLONE
  10. ATORVASTATIN [Concomitant]
     Active Substance: ATORVASTATIN
  11. METHYLPREDNISOLONE. [Concomitant]
     Active Substance: METHYLPREDNISOLONE
     Indication: PREMEDICATION
     Dosage: 100.0 MILLIGRAM
     Route: 042
  12. LORAZEPAM. [Concomitant]
     Active Substance: LORAZEPAM
  13. MYCOPHENOLATE MOFETIL. [Concomitant]
     Active Substance: MYCOPHENOLATE MOFETIL
     Route: 065
  14. PROTRIN DF [Concomitant]
  15. SINUS RINSE [Concomitant]
     Active Substance: SODIUM BICARBONATE\SODIUM CHLORIDE
  16. RITUXIMAB (UNKNOWN) [Suspect]
     Active Substance: RITUXIMAB
     Dosage: 500 MILLIGRAM, 1 EVERY 6 MONTHS
     Route: 042
  17. AZATHIOPRINE. [Concomitant]
     Active Substance: AZATHIOPRINE
  18. GLYBURIDE. [Concomitant]
     Active Substance: GLYBURIDE
  19. METFORMIN [Concomitant]
     Active Substance: METFORMIN HYDROCHLORIDE
     Route: 065
  20. RAMIPRIL. [Concomitant]
     Active Substance: RAMIPRIL

REACTIONS (2)
  - Off label use [Unknown]
  - Haemorrhoids [Unknown]
